FAERS Safety Report 9748748 (Version 1)
Quarter: 2013Q4

REPORT INFORMATION
  Report Type: Spontaneous
  Country: DE (occurrence: None)
  Receive Date: 20131209
  Receipt Date: 20131209
  Transmission Date: 20140711
  Serious: Yes (Hospitalization)
  Sender: FDA-Public Use
  Company Number: AUR-APL-2013-10258

PATIENT
  Age: 89 Year
  Sex: Female
  Weight: 55 kg

DRUGS (2)
  1. BISOPROLOL [Suspect]
     Indication: ATRIAL FIBRILLATION
     Dosage: 10 MG (5MG, 2 IN 1 D) ORAL
     Route: 048
  2. MARCUPHEN CT [Suspect]
     Indication: ATRIAL FIBRILLATION
     Route: 048

REACTIONS (5)
  - Accidental overdose [None]
  - Drug administration error [None]
  - Product packaging issue [None]
  - International normalised ratio abnormal [None]
  - Product label confusion [None]
